FAERS Safety Report 12203535 (Version 1)
Quarter: 2016Q1

REPORT INFORMATION
  Report Type: Spontaneous
  Country: US (occurrence: None)
  Receive Date: 20160321
  Receipt Date: 20160321
  Transmission Date: 20160526
  Serious: Yes (Life-Threatening)
  Sender: FDA-Public Use
  Company Number: None

PATIENT
  Age: 66 Year
  Sex: Male

DRUGS (1)
  1. FENTANYL 100MCG ATAVIS [Suspect]
     Active Substance: FENTANYL
     Indication: PAIN
     Dosage: 3 PATCHES EVERY 72 HOURS TOPICAL
     Route: 061
     Dates: start: 20160312, end: 20160320

REACTIONS (6)
  - Altered state of consciousness [None]
  - Feeling hot [None]
  - Product substitution issue [None]
  - Device leakage [None]
  - Feeling abnormal [None]
  - Drug effect increased [None]

NARRATIVE: CASE EVENT DATE: 20160320
